FAERS Safety Report 24158071 (Version 1)
Quarter: 2024Q3

REPORT INFORMATION
  Report Type: Report from Study
  Country: AR (occurrence: AR)
  Receive Date: 20240731
  Receipt Date: 20240731
  Transmission Date: 20241017
  Serious: Yes (Other)
  Sender: EMD SERONO INC
  Company Number: AR-Merck Healthcare KGaA-2024039607

PATIENT
  Age: 17 Year
  Sex: Male

DRUGS (1)
  1. SAIZEN [Suspect]
     Active Substance: SOMATROPIN
     Indication: Small for dates baby
     Route: 058
     Dates: start: 20200716

REACTIONS (4)
  - Liver disorder [Not Recovered/Not Resolved]
  - Disease recurrence [Not Recovered/Not Resolved]
  - Liver transplant [Not Recovered/Not Resolved]
  - Laboratory test abnormal [Not Recovered/Not Resolved]

NARRATIVE: CASE EVENT DATE: 20240301
